FAERS Safety Report 23240445 (Version 5)
Quarter: 2025Q3

REPORT INFORMATION
  Report Type: Spontaneous
  Country: US (occurrence: US)
  Receive Date: 20231129
  Receipt Date: 20250801
  Transmission Date: 20251021
  Serious: No
  Sender: SANOFI AVENTIS
  Company Number: US-SA-SAC20231120001470

PATIENT
  Age: 37 Year
  Sex: Female

DRUGS (7)
  1. DUPIXENT [Suspect]
     Active Substance: DUPILUMAB
     Indication: Dermatitis contact
     Dosage: 300 MG, QOW
     Route: 058
     Dates: start: 202304
  2. DUPIXENT [Suspect]
     Active Substance: DUPILUMAB
     Indication: Dermatitis atopic
  3. DUPIXENT [Suspect]
     Active Substance: DUPILUMAB
     Indication: Eczema
  4. DUPIXENT [Suspect]
     Active Substance: DUPILUMAB
     Indication: Dermatitis allergic
  5. IBUPROFEN [Concomitant]
     Active Substance: IBUPROFEN
  6. DOXYCYCLINE [Concomitant]
     Active Substance: DOXYCYCLINE
  7. MIRENA [Concomitant]
     Active Substance: LEVONORGESTREL

REACTIONS (6)
  - Rash erythematous [Not Recovered/Not Resolved]
  - Rash [Unknown]
  - Dermatitis atopic [Recovering/Resolving]
  - Product use in unapproved indication [Unknown]
  - Accidental exposure to product [Unknown]
  - Exposure via skin contact [Unknown]

NARRATIVE: CASE EVENT DATE: 20230101
